FAERS Safety Report 24435549 (Version 1)
Quarter: 2024Q4

REPORT INFORMATION
  Report Type: Report from Study
  Country: US (occurrence: US)
  Receive Date: 20241015
  Receipt Date: 20241015
  Transmission Date: 20250114
  Serious: Yes (Other)
  Sender: UCB
  Company Number: US-UCBSA-2024051585

PATIENT
  Age: 67 Year
  Sex: Female

DRUGS (3)
  1. LACOSAMIDE [Suspect]
     Active Substance: LACOSAMIDE
     Indication: Seizure
     Dosage: 100MG TAKE 1 TABLET BY MOUTH IN THE MORNING AND 1 TABLET AT NOON AND 2 TABLETS IN THE EVENING, 400MG
     Route: 048
  2. LACOSAMIDE [Suspect]
     Active Substance: LACOSAMIDE
     Indication: Epilepsy
  3. KEPPRA [Suspect]
     Active Substance: LEVETIRACETAM
     Indication: Product used for unknown indication
     Dosage: 500MG TAKE 2 AND ONE-HALF TABLETS BY MOUTH IN THE MORNING, 2 TABLETS AT NOON, AND 2 AND ONE-HALF TAB
     Route: 048

REACTIONS (4)
  - Lung neoplasm malignant [Not Recovered/Not Resolved]
  - Overdose [Unknown]
  - Wrong technique in product usage process [Unknown]
  - Inappropriate schedule of product administration [Unknown]

NARRATIVE: CASE EVENT DATE: 20240301
